FAERS Safety Report 6194666-6 (Version None)
Quarter: 2009Q2

REPORT INFORMATION
  Report Type: 
  Country: None (occurrence: None)
  Receive Date: 20090515
  Receipt Date: 20090515
  Transmission Date: 20091009
  Serious: Yes (Hospitalization)
  Sender: FDA-Public Use
  Company Number: None

PATIENT
  Age: 68 Year
  Sex: Male
  Weight: 91 kg

DRUGS (1)
  1. ERTAPENEM [Suspect]
     Indication: SURGERY
     Dosage: 1 GM EVERY DAY IV
     Route: 042
     Dates: start: 20090207, end: 20090208

REACTIONS (1)
  - RASH [None]
